FAERS Safety Report 7520839-3 (Version None)
Quarter: 2011Q2

REPORT INFORMATION
  Report Type: 
  Country: None (occurrence: None)
  Receive Date: 20110603
  Receipt Date: 20100819
  Transmission Date: 20111010
  Serious: Yes (Hospitalization)
  Sender: FDA-Public Use
  Company Number: US-BAYER-201025149NA

PATIENT
  Age: 16 Year
  Sex: Female
  Weight: 57.273 kg

DRUGS (2)
  1. YASMIN [Suspect]
     Indication: CONTRACEPTION
     Dosage: UNK UNK, QD
     Route: 048
     Dates: start: 20070718, end: 20071115
  2. YASMIN [Suspect]
     Indication: ACNE

REACTIONS (10)
  - NAUSEA [None]
  - COLD SWEAT [None]
  - ABDOMINAL PAIN UPPER [None]
  - FOOD INTOLERANCE [None]
  - CHANGE OF BOWEL HABIT [None]
  - MALAISE [None]
  - CHOLECYSTITIS CHRONIC [None]
  - GASTRIC DISORDER [None]
  - BILIARY DYSKINESIA [None]
  - VOMITING [None]
